FAERS Safety Report 11593494 (Version 1)
Quarter: 2015Q4

REPORT INFORMATION
  Report Type: Spontaneous
  Country: US (occurrence: US)
  Receive Date: 20151005
  Receipt Date: 20151005
  Transmission Date: 20160304
  Serious: No
  Sender: FDA-Public Use
  Company Number: US-WATSON-2015-10587

PATIENT
  Sex: Female

DRUGS (2)
  1. VERAPAMIL [Suspect]
     Active Substance: VERAPAMIL HYDROCHLORIDE
     Indication: MIGRAINE PROPHYLAXIS
     Dosage: 120 MG, UNKNOWN
     Route: 065
  2. SUMATRIPTAN. [Concomitant]
     Active Substance: SUMATRIPTAN
     Indication: PRODUCT USED FOR UNKNOWN INDICATION

REACTIONS (3)
  - Rash [Unknown]
  - Migraine [Unknown]
  - Off label use [Unknown]
